FAERS Safety Report 5353881-1 (Version None)
Quarter: 2007Q2

REPORT INFORMATION
  Report Type: 
  Country: None (occurrence: None)
  Receive Date: 20070518
  Receipt Date: 20070312
  Transmission Date: 20071010
  Serious: No
  Sender: FDA-Public Use
  Company Number: TPA2006A01105

PATIENT
  Age: 51 Year
  Sex: Male

DRUGS (6)
  1. ROZEREM [Suspect]
     Indication: INSOMNIA
     Dosage: PER ORAL
     Route: 048
     Dates: start: 20060404, end: 20060414
  2. PROZAC [Concomitant]
  3. KLONOPIN [Concomitant]
  4. DURAGESIC-100 [Concomitant]
  5. BACLOFEN [Concomitant]
  6. BUTAL (ACETYLSALICYLIC ACID, CAFFEINE, BUTALBITAL) [Concomitant]

REACTIONS (1)
  - NIGHT SWEATS [None]
